FAERS Safety Report 8611295-2 (Version None)
Quarter: 2012Q3

REPORT INFORMATION
  Report Type: 
  Country: None (occurrence: None)
  Receive Date: 20120822
  Receipt Date: 20120814
  Transmission Date: 20120928
  Serious: Yes (Hospitalization, Other)
  Sender: FDA-Public Use
  Company Number: KR-ELI_LILLY_AND_COMPANY-KR201207006830

PATIENT
  Sex: Male

DRUGS (1)
  1. CIALIS [Suspect]
     Indication: ERECTILE DYSFUNCTION
     Dosage: 20 MG, UNK
     Dates: start: 20120701

REACTIONS (7)
  - HOT FLUSH [None]
  - TREMOR [None]
  - NASOPHARYNGITIS [None]
  - PARALYSIS [None]
  - DIZZINESS [None]
  - MYALGIA [None]
  - CHILLS [None]
